FAERS Safety Report 25208685 (Version 1)
Quarter: 2025Q2

REPORT INFORMATION
  Report Type: Spontaneous
  Country: US (occurrence: None)
  Receive Date: 20250416
  Receipt Date: 20250416
  Transmission Date: 20250717
  Serious: Yes (Other)
  Sender: FDA-CTU
  Company Number: None

PATIENT
  Age: 30 Year
  Sex: Male

DRUGS (7)
  1. RISPERIDONE [Suspect]
     Active Substance: RISPERIDONE
     Indication: Affective disorder
     Dosage: 4 MG TWICE A DAY ORAL
     Route: 048
     Dates: start: 20250411, end: 20250412
  2. trazodone 50 mg HS PRN [Concomitant]
     Dates: start: 20250411
  3. Zyprexa Zydis 5 mg Q6 PRN [Concomitant]
     Dates: start: 20250411
  4. divalproex ER 500 mg BID [Concomitant]
     Dates: start: 20250411
  5. ibuprofen 600 mg Q6 PRN [Concomitant]
     Dates: start: 20250411
  6. acetaminophen 650 mg Q4 PRN [Concomitant]
     Dates: start: 20250411
  7. nicotine 21 mg patch daily [Concomitant]
     Dates: start: 20250411

REACTIONS (1)
  - Dystonia [None]

NARRATIVE: CASE EVENT DATE: 20250412
